FAERS Safety Report 26154703 (Version 1)
Quarter: 2025Q4

REPORT INFORMATION
  Report Type: Spontaneous
  Country: EU (occurrence: EU)
  Receive Date: 20251215
  Receipt Date: 20251215
  Transmission Date: 20260117
  Serious: Yes (Hospitalization, Other)
  Sender: CHEPLAPHARM
  Company Number: None

PATIENT
  Age: 53 Year
  Sex: Male
  Weight: 103 kg

DRUGS (7)
  1. QUETIAPINE [Suspect]
     Active Substance: QUETIAPINE
     Indication: Schizophrenia
     Dosage: 2 TABLETS AT BEDTIME, I.E., 600 MG/DAY;  LONG-TERM?DAILY DOSE: 600 MILLIGRAM
     Route: 048
     Dates: start: 2015
  2. ABILIFY MAINTENA [Suspect]
     Active Substance: ARIPIPRAZOLE
     Indication: Schizophrenia
     Dosage: 1 IM ON THE 15TH OF THE MONTH, POWDER AND SOLVENT FOR PROLONGED-RELEASE INJECTABLE SUSPENSION IN ...
     Route: 030
     Dates: start: 2020
  3. MIRTAZAPINE [Suspect]
     Active Substance: MIRTAZAPINE
     Indication: Product used for unknown indication
     Dosage: 3 TABLETS AT BEDTIME; LONG-TERM?DAILY DOSE: 45 MILLIGRAM
     Route: 048
     Dates: start: 2020, end: 20251106
  4. CYAMEMAZINE [Suspect]
     Active Substance: CYAMEMAZINE
     Indication: Product used for unknown indication
     Dosage: 1-0-1 (INTRODUCED 1 MONTH AGO), BID?DAILY DOSE: 50 MILLIGRAM
     Route: 048
     Dates: start: 202510, end: 20251106
  5. BACLOFEN [Suspect]
     Active Substance: BACLOFEN
     Indication: Prophylaxis against alcoholic withdrawal syndrome
     Dosage: LONG-TERM, 5-5-5; LONG-TERM AT BEDTIME ?DAILY DOSE: 150 MILLIGRAM
     Route: 048
     Dates: end: 20251106
  6. ZOPICLONE [Suspect]
     Active Substance: ZOPICLONE
     Dosage: 2 TABLETS AT BEDTIME; LONG-TERM?DAILY DOSE: 2 DOSAGE FORM
  7. VALIUM [Suspect]
     Active Substance: DIAZEPAM
     Dosage: 10, 1-1-1-1; AT BEDTIME LONG-TERM?DAILY DOSE: 4 DOSAGE FORM

REACTIONS (11)
  - Status epilepticus [Recovered/Resolved]
  - Confusional state [Recovered/Resolved]
  - Urinary retention [Recovered/Resolved]
  - Sepsis [Unknown]
  - Acute kidney injury [Unknown]
  - Rhabdomyolysis [Unknown]
  - Hepatic cytolysis [Unknown]
  - Coma [Unknown]
  - Insomnia [Unknown]
  - Agitation [Unknown]
  - Disorientation [Unknown]

NARRATIVE: CASE EVENT DATE: 20250101
